FAERS Safety Report 25518113 (Version 1)
Quarter: 2025Q3

REPORT INFORMATION
  Report Type: Spontaneous
  Country: US (occurrence: US)
  Receive Date: 20250704
  Receipt Date: 20250704
  Transmission Date: 20251020
  Serious: No
  Sender: ELI LILLY AND COMPANY
  Company Number: US-ELI_LILLY_AND_COMPANY-US202507002363

PATIENT
  Age: 64 Year
  Sex: Female

DRUGS (8)
  1. MOUNJARO [Suspect]
     Active Substance: TIRZEPATIDE
     Indication: Product used for unknown indication
     Route: 065
     Dates: start: 202411
  2. MOUNJARO [Suspect]
     Active Substance: TIRZEPATIDE
     Indication: Product used for unknown indication
     Route: 065
     Dates: start: 202411
  3. MOUNJARO [Suspect]
     Active Substance: TIRZEPATIDE
     Indication: Product used for unknown indication
     Route: 065
     Dates: start: 202411
  4. MOUNJARO [Suspect]
     Active Substance: TIRZEPATIDE
     Indication: Product used for unknown indication
     Route: 065
     Dates: start: 202411
  5. MOUNJARO [Suspect]
     Active Substance: TIRZEPATIDE
     Route: 065
     Dates: start: 202411
  6. MOUNJARO [Suspect]
     Active Substance: TIRZEPATIDE
     Route: 065
     Dates: start: 202411
  7. MOUNJARO [Suspect]
     Active Substance: TIRZEPATIDE
     Route: 065
     Dates: start: 202411
  8. MOUNJARO [Suspect]
     Active Substance: TIRZEPATIDE
     Route: 065
     Dates: start: 202411

REACTIONS (2)
  - Incorrect dose administered [Unknown]
  - Injection site erythema [Unknown]
